FAERS Safety Report 22884437 (Version 3)
Quarter: 2023Q4

REPORT INFORMATION
  Report Type: Spontaneous
  Country: US (occurrence: US)
  Receive Date: 20230830
  Receipt Date: 20231208
  Transmission Date: 20240110
  Serious: No
  Sender: FDA-Public Use
  Company Number: US-MIRATI-MT2023PM04494

PATIENT

DRUGS (6)
  1. KRAZATI [Suspect]
     Active Substance: ADAGRASIB
     Indication: Colorectal cancer
     Dosage: 600 MG, BID
     Route: 048
     Dates: start: 20230316
  2. KRAZATI [Suspect]
     Active Substance: ADAGRASIB
     Indication: Colon cancer
     Dosage: 400 MG, BID
     Route: 048
     Dates: start: 20230406, end: 20230807
  3. KRAZATI [Suspect]
     Active Substance: ADAGRASIB
     Indication: Colon cancer
  4. CETUXIMAB [Suspect]
     Active Substance: CETUXIMAB
     Indication: Colorectal cancer
     Dosage: UNK
     Dates: start: 202303
  5. PANTOPRAZOLE [Concomitant]
     Active Substance: PANTOPRAZOLE
     Dosage: 40 MG
  6. LISINOPRIL [Concomitant]
     Active Substance: LISINOPRIL
     Dosage: 30 MG

REACTIONS (7)
  - Muscle injury [Unknown]
  - Neoplasm progression [Not Recovered/Not Resolved]
  - Bone pain [Not Recovered/Not Resolved]
  - Back pain [Not Recovered/Not Resolved]
  - Hepatic enzyme increased [Unknown]
  - Arthralgia [Not Recovered/Not Resolved]
  - Off label use [Unknown]

NARRATIVE: CASE EVENT DATE: 20230701
